FAERS Safety Report 7356356-3 (Version None)
Quarter: 2011Q1

REPORT INFORMATION
  Report Type: 
  Country: None (occurrence: None)
  Receive Date: 20110316
  Receipt Date: 20110311
  Transmission Date: 20110831
  Serious: Yes (Hospitalization)
  Sender: FDA-Public Use
  Company Number: NO-PFIZER INC-2011048948

PATIENT
  Age: 57 Year
  Sex: Female

DRUGS (2)
  1. LYRICA [Suspect]
     Indication: TRIGEMINAL NEURALGIA
     Route: 048
     Dates: start: 20101001
  2. ZOPICLONE [Concomitant]
     Route: 048

REACTIONS (8)
  - MALIGNANT HYPERTENSION [None]
  - DRY SKIN [None]
  - CIRCUMORAL OEDEMA [None]
  - DIZZINESS [None]
  - TROPONIN INCREASED [None]
  - SINUS TACHYCARDIA [None]
  - DYSPHAGIA [None]
  - OEDEMA PERIPHERAL [None]
